FAERS Safety Report 5705338-3 (Version None)
Quarter: 2008Q2

REPORT INFORMATION
  Report Type: 
  Country: None (occurrence: None)
  Receive Date: 20080410
  Receipt Date: 20080328
  Transmission Date: 20081010
  Serious: Yes (Other)
  Sender: FDA-Public Use
  Company Number: US023176

PATIENT
  Age: 25 Year
  Sex: Female

DRUGS (7)
  1. MODIODAL [Suspect]
     Indication: NARCOLEPSY
     Dosage: 200 MG QD ORAL
     Route: 048
     Dates: start: 20071002, end: 20071011
  2. MODIODAL [Suspect]
     Indication: NARCOLEPSY
     Dosage: 100 MG QD ORAL
     Route: 048
     Dates: start: 20071012, end: 20071209
  3. RITALIN [Concomitant]
  4. DIAZEPAM [Concomitant]
  5. EVAMYL [Concomitant]
  6. SILECE [Concomitant]
  7. RESLIN [Concomitant]

REACTIONS (3)
  - HEADACHE [None]
  - LIVER DISORDER [None]
  - NAUSEA [None]
